FAERS Safety Report 7359089-2 (Version None)
Quarter: 2011Q1

REPORT INFORMATION
  Report Type: 
  Country: None (occurrence: None)
  Receive Date: 20110317
  Receipt Date: 20110208
  Transmission Date: 20110831
  Serious: Yes (Life-Threatening, Hospitalization)
  Sender: FDA-Public Use
  Company Number: US-BAYER-201029768NA

PATIENT
  Sex: Female

DRUGS (4)
  1. PLAVIX [Concomitant]
  2. YASMIN [Suspect]
     Indication: PRODUCT USED FOR UNKNOWN INDICATION
     Dates: start: 20030101, end: 20050101
  3. UNCODEABLE ^UNCLASSIFIABLE^ [Concomitant]
  4. DROSPIRENONE AND ETHINYL ESTRADIOL [Suspect]
     Indication: PRODUCT USED FOR UNKNOWN INDICATION
     Route: 048
     Dates: start: 20030101, end: 20050101

REACTIONS (13)
  - CEREBROVASCULAR ACCIDENT [None]
  - DYSPHONIA [None]
  - NAUSEA [None]
  - NYSTAGMUS [None]
  - MUSCULAR WEAKNESS [None]
  - GAIT DISTURBANCE [None]
  - VOMITING [None]
  - OPHTHALMOPLEGIA [None]
  - HEADACHE [None]
  - DYSARTHRIA [None]
  - VIITH NERVE PARALYSIS [None]
  - DIZZINESS [None]
  - GAZE PALSY [None]
